FAERS Safety Report 10515915 (Version 4)
Quarter: 2014Q4

REPORT INFORMATION
  Report Type: Spontaneous
  Country: US (occurrence: US)
  Receive Date: 20141014
  Receipt Date: 20141215
  Transmission Date: 20150528
  Serious: No
  Sender: FDA-Public Use
  Company Number: US-PFIZER INC-2014278751

PATIENT
  Age: 64 Year
  Sex: Female
  Weight: 79.4 kg

DRUGS (5)
  1. ADVIL [Concomitant]
     Active Substance: IBUPROFEN
     Dosage: UNK, (AS NEEDED)
  2. PREMARIN [Suspect]
     Active Substance: ESTROGENS, CONJUGATED
     Indication: VULVOVAGINAL DRYNESS
     Dosage: 1 G, THREE TIMES A WEEK
     Route: 067
     Dates: start: 2011
  3. TRAMADOL [Concomitant]
     Active Substance: TRAMADOL
     Dosage: UNK, (AS NEEDED)
  4. ESTRACE [Concomitant]
     Active Substance: ESTRADIOL
     Dosage: UNK
     Dates: start: 201303
  5. PREMARIN [Suspect]
     Active Substance: ESTROGENS, CONJUGATED
     Indication: LIBIDO DECREASED

REACTIONS (4)
  - Drug dose omission [Recovered/Resolved]
  - Herpes zoster [Recovering/Resolving]
  - Drug ineffective [Unknown]
  - Product packaging quantity issue [Recovered/Resolved]
